FAERS Safety Report 18405639 (Version 1)
Quarter: 2020Q4

REPORT INFORMATION
  Report Type: Spontaneous
  Country: US (occurrence: US)
  Receive Date: 20201020
  Receipt Date: 20201020
  Transmission Date: 20210114
  Serious: Yes (Death)
  Sender: FDA-Public Use
  Company Number: US-EPIC PHARMA LLC-2020EPC00312

PATIENT
  Sex: Male

DRUGS (1)
  1. METHADONE [Suspect]
     Active Substance: METHADONE HYDROCHLORIDE
     Indication: DRUG USE DISORDER
     Route: 064

REACTIONS (4)
  - Foetal placental thrombosis [Fatal]
  - Vena cava thrombosis [Fatal]
  - Renal vein thrombosis [Fatal]
  - Respiratory failure [Fatal]
